FAERS Safety Report 8498224 (Version 2)
Quarter: 2013Q1

REPORT INFORMATION
  Report Type: Spontaneous
  Country: SE (occurrence: SE)
  Receive Date: 20120406
  Receipt Date: 20130228
  Transmission Date: 20140127
  Serious: Yes (Hospitalization)
  Sender: FDA-Public Use
  Company Number: SE-ABBOTT-12P-150-0920073-00

PATIENT
  Age: 40 None
  Sex: Female

DRUGS (7)
  1. HUMIRA 40 MG/ 0.8 ML PRE-FILLED SYRINGE [Suspect]
     Indication: PSORIATIC ARTHROPATHY
     Route: 058
     Dates: start: 20090512, end: 201109
  2. ENBREL [Suspect]
     Indication: PSORIATIC ARTHROPATHY
     Dates: start: 200309, end: 200802
  3. ENBREL [Suspect]
     Dates: start: 200810, end: 200901
  4. REMICADE [Suspect]
     Indication: PSORIATIC ARTHROPATHY
     Dates: start: 199911, end: 200309
  5. METHOTREXATE [Concomitant]
     Indication: PSORIATIC ARTHROPATHY
     Dates: start: 1991, end: 201109
  6. COX-1-INHIBITORS [Concomitant]
     Indication: PSORIATIC ARTHROPATHY
     Dosage: SOMETIMES
  7. CORTISONE [Concomitant]
     Indication: PSORIATIC ARTHROPATHY
     Dosage: LOW DOSE SOMETIMES

REACTIONS (10)
  - Malaise [Recovered/Resolved]
  - Dyspnoea [Recovered/Resolved]
  - Tachycardia [Recovered/Resolved]
  - Night sweats [Recovered/Resolved]
  - Red blood cell sedimentation rate increased [Recovering/Resolving]
  - C-reactive protein increased [Recovering/Resolving]
  - Pyrexia [Recovered/Resolved]
  - Renal abscess [Recovered/Resolved]
  - Lung abscess [Recovered/Resolved]
  - Psoriatic arthropathy [Unknown]
